FAERS Safety Report 7970876-X (Version None)
Quarter: 2011Q4

REPORT INFORMATION
  Report Type: 
  Country: None (occurrence: None)
  Receive Date: 20111212
  Receipt Date: 20111202
  Transmission Date: 20120403
  Serious: Yes (Death)
  Sender: FDA-Public Use
  Company Number: LB-GLAXOSMITHKLINE-B0768339A

PATIENT
  Age: 82 Year
  Sex: Female

DRUGS (1)
  1. PROMACTA [Suspect]
     Indication: APLASTIC ANAEMIA
     Dosage: 25MG PER DAY
     Route: 065
     Dates: start: 20110901, end: 20111013

REACTIONS (1)
  - SEPTIC SHOCK [None]
